FAERS Safety Report 11185963 (Version 1)
Quarter: 2015Q2

REPORT INFORMATION
  Report Type: Spontaneous
  Country: US (occurrence: US)
  Receive Date: 20150612
  Receipt Date: 20150612
  Transmission Date: 20150821
  Serious: Yes (Hospitalization, Other)
  Sender: FDA-Public Use
  Company Number: US-BAUSCH-BL-2015-015098

PATIENT
  Age: 68 Year
  Sex: Female

DRUGS (3)
  1. TOBRAMYCIN. [Suspect]
     Active Substance: TOBRAMYCIN
     Indication: KNEE ARTHROPLASTY
  2. VANCOMYCIN [Suspect]
     Active Substance: VANCOMYCIN
     Indication: KNEE ARTHROPLASTY
  3. DAPTOMYCIN. [Suspect]
     Active Substance: DAPTOMYCIN
     Indication: KNEE ARTHROPLASTY
     Route: 042

REACTIONS (5)
  - Drug level increased [Unknown]
  - Acute kidney injury [Unknown]
  - Decreased appetite [Unknown]
  - Oliguria [Unknown]
  - Asthenia [Unknown]
